FAERS Safety Report 7501239-9 (Version None)
Quarter: 2011Q2

REPORT INFORMATION
  Report Type: 
  Country: None (occurrence: None)
  Receive Date: 20110524
  Receipt Date: 20110510
  Transmission Date: 20111010
  Serious: Yes (Other)
  Sender: FDA-Public Use
  Company Number: US-UCBSA-032584

PATIENT
  Sex: Female

DRUGS (1)
  1. PEDIAPRED [Suspect]
     Indication: POLYMYALGIA RHEUMATICA
     Dosage: 4-5MG ONCE DAILY
     Route: 048
     Dates: start: 19950101

REACTIONS (3)
  - DYSGEUSIA [None]
  - SWOLLEN TONGUE [None]
  - PHARYNGEAL OEDEMA [None]
